FAERS Safety Report 7219177-8 (Version None)
Quarter: 2011Q1

REPORT INFORMATION
  Report Type: 
  Country: None (occurrence: None)
  Receive Date: 20110111
  Receipt Date: 20110105
  Transmission Date: 20110831
  Serious: Yes (Other)
  Sender: FDA-Public Use
  Company Number: US-PFIZER INC-2006089653

PATIENT
  Sex: Male

DRUGS (4)
  1. TOPROL-XL [Concomitant]
     Dosage: UNK
  2. LISINOPRIL AND HYDROCHLOROTHIAZIDE [Concomitant]
     Dosage: UNK
  3. CARDIZEM [Concomitant]
     Dosage: UNK
  4. LIPITOR [Suspect]
     Dosage: 20 MG, 1X/DAY
     Dates: start: 20030801

REACTIONS (9)
  - FATIGUE [None]
  - AMNESIA [None]
  - BALANCE DISORDER [None]
  - CONFUSIONAL STATE [None]
  - ASTHENIA [None]
  - GAIT DISTURBANCE [None]
  - NEUROPATHY PERIPHERAL [None]
  - IRRITABILITY [None]
  - DEPRESSION [None]
